FAERS Safety Report 6133989-3 (Version None)
Quarter: 2009Q1

REPORT INFORMATION
  Report Type: 
  Country: None (occurrence: None)
  Receive Date: 20090326
  Receipt Date: 20090318
  Transmission Date: 20090719
  Serious: Yes (Hospitalization)
  Sender: FDA-Public Use
  Company Number: FR-WYE-H08689609

PATIENT
  Age: 93 Year
  Sex: Female

DRUGS (3)
  1. CORDARONE [Suspect]
     Route: 048
  2. TRUSOPT [Concomitant]
     Dosage: UNSPECIFIED
     Route: 047
  3. EBIXA [Interacting]
     Route: 048

REACTIONS (4)
  - ATRIOVENTRICULAR BLOCK FIRST DEGREE [None]
  - DRUG INTERACTION [None]
  - MALAISE [None]
  - SINUS BRADYCARDIA [None]
